FAERS Safety Report 8886097 (Version 2)
Quarter: 2012Q4

REPORT INFORMATION
  Report Type: 
  Country: US (occurrence: US)
  Receive Date: 20121105
  Receipt Date: 20121203
  Transmission Date: 20130627
  Serious: Yes (Death, Other)
  Sender: FDA-Public Use
  Company Number: US-ASTELLAS-2012US010640

PATIENT
  Age: 56 Year
  Sex: Male

DRUGS (1)
  1. XTANDI [Suspect]
     Indication: PROSTATE CANCER METASTATIC
     Dosage: 160 mg, UID/QD
     Route: 048
     Dates: start: 20120920

REACTIONS (2)
  - Renal failure [Unknown]
  - Prostate cancer [Fatal]
